FAERS Safety Report 10072479 (Version 1)
Quarter: 2014Q2

REPORT INFORMATION
  Report Type: Spontaneous
  Country: US (occurrence: None)
  Receive Date: 20140409
  Receipt Date: 20140409
  Transmission Date: 20141212
  Serious: Yes (Other)
  Sender: FDA-Public Use
  Company Number: 20140186

PATIENT
  Age: 64 Year
  Sex: Female

DRUGS (16)
  1. VENOFER [Suspect]
     Indication: IRON DEFICIENCY ANAEMIA
     Dosage: 200 MG IN NSS
     Dates: start: 20140307, end: 20140321
  2. B COMPLEX [Concomitant]
  3. B12 [Concomitant]
  4. COLACE (DOCUSATE) [Concomitant]
  5. COUMADIN (WARFARIN) [Concomitant]
  6. DULCOLAX (BISACODYL) [Concomitant]
  7. ERY-TAB (ERYTHROMYCIN) [Concomitant]
  8. MIRALAX (POLYETHYLENE GLYCOL) [Concomitant]
  9. PHEBERGEN (PROMETHAZINE) [Concomitant]
  10. PROLISA (DENOSUMAB) [Concomitant]
  11. PROTONIX (PANTOPRAZOLE) [Concomitant]
  12. VICODIN (HYDROCODONE/PARACETAMOL) [Concomitant]
  13. VYVANSE (LISDEXAMFETAMIKNE DIMESYLATE) [Concomitant]
  14. PRAVASTATIN [Concomitant]
  15. CALCIUM [Concomitant]
  16. MAGNESIUM [Concomitant]

REACTIONS (16)
  - Feeling abnormal [None]
  - Dry mouth [None]
  - Blood pressure increased [None]
  - Nausea [None]
  - Palpitations [None]
  - Hypoaesthesia [None]
  - Dyspnoea [None]
  - Tremor [None]
  - Fatigue [None]
  - Asthenia [None]
  - Pain [None]
  - Paraesthesia [None]
  - Headache [None]
  - Myalgia [None]
  - Anxiety [None]
  - Off label use [None]
